FAERS Safety Report 20845042 (Version 1)
Quarter: 2022Q2

REPORT INFORMATION
  Report Type: Spontaneous
  Country: US (occurrence: None)
  Receive Date: 20220517
  Receipt Date: 20220517
  Transmission Date: 20220721
  Serious: Yes (Other)
  Sender: FDA-Public Use
  Company Number: None

PATIENT
  Age: 32 Year
  Sex: Female
  Weight: 94.5 kg

DRUGS (1)
  1. ELURYNG [Suspect]
     Active Substance: ETHINYL ESTRADIOL\ETONOGESTREL
     Indication: Contraception
     Dosage: OTHER FREQUENCY : 1 RING F/3 WKS;?
     Route: 067
     Dates: start: 20210616, end: 20220503

REACTIONS (2)
  - Pregnancy with contraceptive device [None]
  - Product used for unknown indication [None]

NARRATIVE: CASE EVENT DATE: 20220503
